FAERS Safety Report 8624281-3 (Version None)
Quarter: 2012Q3

REPORT INFORMATION
  Report Type: 
  Country: None (occurrence: None)
  Receive Date: 20120827
  Receipt Date: 20120823
  Transmission Date: 20120928
  Serious: Yes (Hospitalization)
  Sender: FDA-Public Use
  Company Number: US-JNJFOC-20120810161

PATIENT
  Sex: Male
  Weight: 54.2 kg

DRUGS (7)
  1. AZATHIOPRINE SODIUM [Concomitant]
  2. ZINC SULFATE [Concomitant]
  3. ANTIBIOTICS [Concomitant]
     Indication: INFLAMMATORY BOWEL DISEASE
  4. VITAMIN D [Concomitant]
  5. PREDNISONE TAB [Concomitant]
  6. REMICADE [Suspect]
     Indication: CROHN'S DISEASE
     Route: 042
     Dates: start: 20100323
  7. IRON [Concomitant]

REACTIONS (1)
  - CROHN'S DISEASE [None]
